FAERS Safety Report 4741736-2 (Version None)
Quarter: 2005Q3

REPORT INFORMATION
  Report Type: 
  Country: None (occurrence: None)
  Receive Date: 20050804
  Receipt Date: 20050415
  Transmission Date: 20060218
  Serious: No
  Sender: FDA-Public Use
  Company Number: WAES 0504USA02749

PATIENT
  Sex: Female

DRUGS (2)
  1. EMEND [Suspect]
     Dosage: SEE IMAGE
     Route: 048
  2. EMEND [Suspect]
     Dosage: SEE IMAGE
     Route: 048

REACTIONS (1)
  - ADVERSE EVENT [None]
